FAERS Safety Report 6499948-6 (Version None)
Quarter: 2009Q4

REPORT INFORMATION
  Report Type: 
  Country: None (occurrence: None)
  Receive Date: 20091216
  Receipt Date: 20091103
  Transmission Date: 20100525
  Serious: Yes (Other)
  Sender: FDA-Public Use
  Company Number: GB-RANBAXY-2009RR-29060

PATIENT
  Sex: Male

DRUGS (3)
  1. RANCEPINE [Suspect]
     Dosage: 1200 MG, QD
     Route: 064
  2. TOPIRAMATE [Suspect]
     Route: 064
  3. CLOBAZAM [Suspect]
     Dosage: 10 MG, QD
     Route: 064

REACTIONS (2)
  - CONGENITAL ANOMALY [None]
  - DRUG EXPOSURE DURING PREGNANCY [None]
